FAERS Safety Report 6882290-9 (Version None)
Quarter: 2010Q3

REPORT INFORMATION
  Report Type: 
  Country: None (occurrence: None)
  Receive Date: 20100702
  Receipt Date: 20091106
  Transmission Date: 20110219
  Serious: Yes (Other)
  Sender: FDA-Public Use
  Company Number: 2009272238

PATIENT

DRUGS (3)
  1. ZOLOFT [Suspect]
  2. GEODON [Suspect]
  3. SEROQUEL [Suspect]

REACTIONS (2)
  - BLOOD PHOSPHORUS DECREASED [None]
  - CONVULSION [None]
